FAERS Safety Report 21162830 (Version 3)
Quarter: 2022Q4

REPORT INFORMATION
  Report Type: Spontaneous
  Country: IE (occurrence: IE)
  Receive Date: 20220802
  Receipt Date: 20221104
  Transmission Date: 20230113
  Serious: Yes (Other)
  Sender: FDA-Public Use
  Company Number: IE-DSJP-DSE-2022-126556

PATIENT
  Age: 92 Year
  Sex: Male

DRUGS (2)
  1. EDOXABAN [Suspect]
     Active Substance: EDOXABAN
     Indication: Atrial flutter
     Dosage: 30 MG, QD
     Route: 048
     Dates: start: 2020
  2. EDOXABAN [Suspect]
     Active Substance: EDOXABAN
     Indication: Atrioventricular block

REACTIONS (3)
  - Prostate cancer [Unknown]
  - Drug interaction [Unknown]
  - Off label use [Unknown]

NARRATIVE: CASE EVENT DATE: 20200101
